FAERS Safety Report 13967060 (Version 2)
Quarter: 2017Q4

REPORT INFORMATION
  Report Type: Report from Study
  Country: US (occurrence: US)
  Receive Date: 20170914
  Receipt Date: 20171027
  Transmission Date: 20180320
  Serious: Yes (Other)
  Sender: FDA-Public Use
  Company Number: US-AMGEN-USASL2017136260

PATIENT
  Age: 72 Year
  Sex: Female
  Weight: 79.8 kg

DRUGS (1)
  1. REPATHA [Suspect]
     Active Substance: EVOLOCUMAB
     Indication: BLOOD CHOLESTEROL INCREASED
     Dosage: 140 MG, Q2WK
     Route: 065

REACTIONS (5)
  - Laboratory test abnormal [Unknown]
  - Respiratory tract infection [Unknown]
  - Influenza like illness [Unknown]
  - Diverticulum [Unknown]
  - Stress [Unknown]

NARRATIVE: CASE EVENT DATE: 2017
